FAERS Safety Report 6944522-8 (Version None)
Quarter: 2010Q3

REPORT INFORMATION
  Report Type: 
  Country: None (occurrence: None)
  Receive Date: 20100827
  Receipt Date: 20100819
  Transmission Date: 20110219
  Serious: Yes (Other)
  Sender: FDA-Public Use
  Company Number: US-PFIZER INC-2010105563

PATIENT
  Sex: Male
  Weight: 52.154 kg

DRUGS (7)
  1. LIPITOR [Suspect]
     Indication: BLOOD CHOLESTEROL INCREASED
     Dosage: 20 MG, DAILY
     Route: 048
     Dates: start: 20050101, end: 20100501
  2. LIPITOR [Suspect]
     Indication: ARTERIOSCLEROSIS
  3. LIPITOR [Suspect]
     Indication: ARTERIOSCLEROSIS CORONARY ARTERY
  4. LEVOTHYROXINE [Concomitant]
     Indication: HYPOTHYROIDISM
     Dosage: UNK
  5. FINASTERIDE [Concomitant]
     Indication: PROSTATIC SPECIFIC ANTIGEN ABNORMAL
     Dosage: UNK
  6. CALCIUM [Concomitant]
     Dosage: UNK
  7. CHROMIUM PICOLINATE [Concomitant]
     Dosage: UNK

REACTIONS (4)
  - BLOOD CHOLESTEROL ABNORMAL [None]
  - DIABETES MELLITUS [None]
  - LOW DENSITY LIPOPROTEIN ABNORMAL [None]
  - MYALGIA [None]
